FAERS Safety Report 9462582 (Version 2)
Quarter: 2013Q3

REPORT INFORMATION
  Report Type: Spontaneous
  Country: US (occurrence: US)
  Receive Date: 20130816
  Receipt Date: 20130826
  Transmission Date: 20140515
  Serious: Yes (Other)
  Sender: FDA-Public Use
  Company Number: US-PFIZER INC-2013236199

PATIENT
  Age: 20 Year
  Sex: Male
  Weight: 88.44 kg

DRUGS (4)
  1. PRISTIQ [Suspect]
     Indication: ANXIETY
     Dosage: 50 MG, UNK
     Dates: start: 2013
  2. PRISTIQ [Suspect]
     Dosage: 50 MG, ALTERNATE DAY
     Dates: start: 20130810
  3. ADDERALL [Suspect]
     Indication: ATTENTION DEFICIT/HYPERACTIVITY DISORDER
     Dosage: 20 MG, DAILY
     Dates: start: 20130807
  4. XANAX [Concomitant]
     Indication: ANXIETY
     Dosage: 0.25 MG, UNK

REACTIONS (12)
  - Serotonin syndrome [Unknown]
  - Hallucination [Unknown]
  - Dizziness [Unknown]
  - Tremor [Unknown]
  - Urticaria [Unknown]
  - Pyrexia [Unknown]
  - Tremor [Unknown]
  - Insomnia [Unknown]
  - Dyspnoea [Unknown]
  - Feeling abnormal [Unknown]
  - Feeling abnormal [Unknown]
  - Feeling abnormal [Unknown]
